FAERS Safety Report 17388598 (Version 3)
Quarter: 2020Q1

REPORT INFORMATION
  Report Type: Report from Study
  Country: FR (occurrence: FR)
  Receive Date: 20200206
  Receipt Date: 20200330
  Transmission Date: 20200409
  Serious: Yes (Hospitalization, Other)
  Sender: FDA-Public Use
  Company Number: FR-EXELIXIS-XL18419026266

PATIENT
  Age: 54 Year
  Sex: Male
  Weight: 61 kg

DRUGS (12)
  1. NIVOLUMAB [Suspect]
     Active Substance: NIVOLUMAB
     Dosage: 3 MG/KG, Q3WEEKS
     Route: 042
     Dates: start: 20191229
  2. BUDESONIDE. [Concomitant]
     Active Substance: BUDESONIDE
  3. SERESTA [Concomitant]
     Active Substance: OXAZEPAM
  4. XL184 [Suspect]
     Active Substance: CABOZANTINIB
     Indication: RENAL CELL CARCINOMA
     Dosage: 40 MG, QD
     Route: 048
     Dates: start: 20191128
  5. IPILIMUMAB [Suspect]
     Active Substance: IPILIMUMAB
     Indication: RENAL CELL CARCINOMA
     Dosage: 1 MG/KG, Q3WEEKS, 4 DOSES
     Route: 042
     Dates: start: 20191128
  6. FINASTERIDE. [Concomitant]
     Active Substance: FINASTERIDE
  7. ACTISKENAN [Concomitant]
     Active Substance: MORPHINE SULFATE
  8. SOLUPRED [Concomitant]
  9. XL184 [Suspect]
     Active Substance: CABOZANTINIB
     Dosage: 20 UNK
     Dates: start: 20191229
  10. IPRATROPIUM [Concomitant]
     Active Substance: IPRATROPIUM
  11. IPILIMUMAB [Suspect]
     Active Substance: IPILIMUMAB
     Dosage: 1 MG/KG, Q3WEEKS, 4 DOSES
     Route: 042
     Dates: start: 20191229
  12. NIVOLUMAB [Suspect]
     Active Substance: NIVOLUMAB
     Indication: RENAL CELL CARCINOMA
     Dosage: 3 MG/KG, Q3WEEKS
     Route: 042
     Dates: start: 20191128

REACTIONS (1)
  - Stevens-Johnson syndrome [Recovered/Resolved]

NARRATIVE: CASE EVENT DATE: 20191219
